FAERS Safety Report 9166613 (Version 1)
Quarter: 2013Q1

REPORT INFORMATION
  Report Type: Other
  Country: US (occurrence: US)
  Receive Date: 20130315
  Receipt Date: 20130315
  Transmission Date: 20140127
  Serious: Yes (Life-Threatening)
  Sender: FDA-Public Use
  Company Number: US-VERTEX PHARMACEUTICALS INC.-2013-003632

PATIENT
  Sex: Male
  Weight: 125 kg

DRUGS (3)
  1. INCIVEK [Suspect]
     Indication: HEPATITIS C
     Dosage: 750 MG, TID
     Route: 048
     Dates: start: 20121121
  2. RIBASPHERE [Suspect]
     Indication: HEPATITIS C
     Dosage: 600 MG, TID
     Route: 048
     Dates: start: 20121121
  3. PEGASYS [Suspect]
     Indication: HEPATITIS C
     Dosage: 180 MG, QW
     Route: 058
     Dates: start: 20121121

REACTIONS (5)
  - Visual impairment [Unknown]
  - Blood urine present [Unknown]
  - Skin fissures [Unknown]
  - Skin burning sensation [Unknown]
  - Blister [Unknown]
